FAERS Safety Report 12940205 (Version 1)
Quarter: 2016Q4

REPORT INFORMATION
  Report Type: Spontaneous
  Country: US (occurrence: US)
  Receive Date: 20161115
  Receipt Date: 20161115
  Transmission Date: 20170207
  Serious: Yes (Hospitalization)
  Sender: FDA-Public Use
  Company Number: US-AMGEN-USASP2016157986

PATIENT
  Age: 49 Year
  Sex: Male

DRUGS (1)
  1. BLINCYTO [Suspect]
     Active Substance: BLINATUMOMAB
     Indication: ACUTE LYMPHOCYTIC LEUKAEMIA
     Dosage: 56 MUG, UNK, OVER 48 HOURS
     Route: 065
     Dates: start: 20161101

REACTIONS (2)
  - Dehydration [Unknown]
  - Pain [Unknown]

NARRATIVE: CASE EVENT DATE: 20161104
